FAERS Safety Report 6916485-2 (Version None)
Quarter: 2010Q3

REPORT INFORMATION
  Report Type: 
  Country: None (occurrence: None)
  Receive Date: 20100810
  Receipt Date: 20100802
  Transmission Date: 20110219
  Serious: Yes (Hospitalization)
  Sender: FDA-Public Use
  Company Number: PHHO2010DE09536

PATIENT
  Sex: Male
  Weight: 94 kg

DRUGS (2)
  1. CERTICAN [Suspect]
     Indication: LIVER TRANSPLANT
     Dosage: 1.5 MG, BID
     Route: 048
  2. TACROLIMUS COMP-TAC+ [Suspect]
     Indication: LIVER TRANSPLANT
     Dosage: 0.5 MG, BID
     Route: 048

REACTIONS (2)
  - INCISIONAL HERNIA [None]
  - INCISIONAL HERNIA REPAIR [None]
